FAERS Safety Report 23073120 (Version 1)
Quarter: 2023Q4

REPORT INFORMATION
  Report Type: Spontaneous
  Country: US (occurrence: US)
  Receive Date: 20231017
  Receipt Date: 20231017
  Transmission Date: 20240110
  Serious: No
  Sender: FDA-Public Use
  Company Number: US-ALCON LABORATORIES-ALC2023US003497

PATIENT
  Sex: Male

DRUGS (2)
  1. INVELTYS [Suspect]
     Active Substance: LOTEPREDNOL ETABONATE
     Dosage: ONE DROP IN RIGHT EYE TWICE A DAY
     Route: 047
  2. INVELTYS [Suspect]
     Active Substance: LOTEPREDNOL ETABONATE
     Indication: Cataract operation
     Dosage: ONE DROP IN HIS LEFT EYE TWICE A DAY
     Route: 047

REACTIONS (2)
  - Product dose omission issue [Unknown]
  - Product packaging issue [Unknown]
